FAERS Safety Report 8425128-0 (Version None)
Quarter: 2012Q2

REPORT INFORMATION
  Report Type: 
  Country: None (occurrence: None)
  Receive Date: 20120611
  Receipt Date: 20120606
  Transmission Date: 20120825
  Serious: Yes (Hospitalization)
  Sender: FDA-Public Use
  Company Number: US-PFIZER INC-2012136207

PATIENT
  Age: 7 Year
  Sex: Male

DRUGS (4)
  1. HYDRALAZINE HYDROCHLORIDE [Suspect]
     Indication: HYPERTENSION
  2. MINOXIDIL [Suspect]
     Indication: HYPERTENSION
  3. SOLIRIS [Suspect]
     Indication: HAEMOLYTIC URAEMIC SYNDROME
     Dosage: UNK
     Route: 042
  4. AMLODIPINE BESYLATE [Suspect]
     Indication: HYPERTENSION

REACTIONS (3)
  - PENILE OEDEMA [None]
  - OEDEMA PERIPHERAL [None]
  - SCROTAL OEDEMA [None]
